FAERS Safety Report 16198603 (Version 1)
Quarter: 2019Q2

REPORT INFORMATION
  Report Type: Spontaneous
  Country: GB (occurrence: GB)
  Receive Date: 20190415
  Receipt Date: 20190415
  Transmission Date: 20190711
  Serious: Yes (Hospitalization)
  Sender: FDA-Public Use
  Company Number: GB-JUBILANT CADISTA PHARMACEUTICALS-2019JUB00140

PATIENT
  Age: 71 Year
  Sex: Male

DRUGS (4)
  1. MEXILETINE [Suspect]
     Active Substance: MEXILETINE
     Dosage: 200 MG, 3X/DAY
     Route: 065
  2. VALSARTAN AND SACUBITRIL [Suspect]
     Active Substance: SACUBITRIL\VALSARTAN
     Dosage: 51/49 MG BID
     Route: 065
  3. EPLERENONE. [Concomitant]
     Active Substance: EPLERENONE
     Dosage: 50 MG, 1X/DAY
     Route: 065
  4. BISOPROLOL [Concomitant]
     Active Substance: BISOPROLOL
     Dosage: 5 MG, 1X/DAY
     Route: 065

REACTIONS (2)
  - Ventricular tachycardia [Recovered/Resolved]
  - Drug interaction [Recovered/Resolved]
